FAERS Safety Report 10657163 (Version 1)
Quarter: 2014Q4

REPORT INFORMATION
  Report Type: Spontaneous
  Country: FR (occurrence: None)
  Receive Date: 20141215
  Receipt Date: 20141215
  Transmission Date: 20150529
  Serious: Yes (Hospitalization)
  Sender: FDA-Public Use
  Company Number: FR2014GSK028478

PATIENT
  Age: 82 Year
  Sex: Female

DRUGS (6)
  1. ATENOLOL (ATENOLOL) [Concomitant]
     Active Substance: ATENOLOL
  2. AMLODIPINE [Concomitant]
     Active Substance: AMLODIPINE BESYLATE
  3. CORDARONE [Suspect]
     Active Substance: AMIODARONE HYDROCHLORIDE
     Indication: PRODUCT USED FOR UNKNOWN INDICATION
     Route: 048
  4. DEROXAT [Suspect]
     Active Substance: PAROXETINE HYDROCHLORIDE
     Indication: PRODUCT USED FOR UNKNOWN INDICATION
     Route: 048
  5. COUMADIN [Suspect]
     Active Substance: WARFARIN SODIUM
     Indication: PRODUCT USED FOR UNKNOWN INDICATION
     Route: 048
     Dates: start: 20141102
  6. INEXIUM (ESOMEPRAZOLE) [Concomitant]

REACTIONS (7)
  - Haemoglobin decreased [None]
  - Hepatic cyst [None]
  - Peritoneal haemorrhage [None]
  - International normalised ratio increased [None]
  - Haemodynamic instability [None]
  - Fall [None]
  - Drug interaction [None]

NARRATIVE: CASE EVENT DATE: 20141102
